FAERS Safety Report 11686521 (Version 6)
Quarter: 2016Q1

REPORT INFORMATION
  Report Type: Report from Study
  Country: CA (occurrence: CA)
  Receive Date: 20151030
  Receipt Date: 20160323
  Transmission Date: 20160525
  Serious: Yes (Hospitalization, Other)
  Sender: FDA-Public Use
  Company Number: CA-PFIZER INC-2015366706

PATIENT
  Age: 46 Year
  Sex: Female

DRUGS (22)
  1. ENTYVIO [Suspect]
     Active Substance: VEDOLIZUMAB
     Indication: COLITIS ULCERATIVE
     Dosage: 300 MG, UNK
     Route: 042
     Dates: start: 20150821
  2. CEFTRIAXONE. [Suspect]
     Active Substance: CEFTRIAXONE
     Indication: ABSCESS
     Dosage: 2 G, DAILY
     Route: 042
     Dates: start: 20150913, end: 20150916
  3. VENOFER [Suspect]
     Active Substance: IRON SUCROSE
     Dosage: UNK
     Route: 042
     Dates: start: 20160113
  4. IMOVAN [Concomitant]
     Dosage: UNK
  5. DILAUDID [Concomitant]
     Active Substance: HYDROMORPHONE HYDROCHLORIDE
     Dosage: UNK
  6. ENTYVIO [Suspect]
     Active Substance: VEDOLIZUMAB
     Dosage: UNK
     Dates: start: 20150904
  7. ANCEF [Suspect]
     Active Substance: CEFAZOLIN SODIUM
     Indication: ABSCESS
     Dosage: 2 G, DAILY
     Route: 042
     Dates: start: 20150916
  8. VANCOMYCIN [Suspect]
     Active Substance: VANCOMYCIN
     Indication: ABSCESS
     Dosage: UNK
     Route: 042
     Dates: start: 20150914, end: 20150916
  9. CARDIZEM [Concomitant]
     Active Substance: DILTIAZEM HYDROCHLORIDE
     Dosage: UNK
  10. PREDNISONE. [Concomitant]
     Active Substance: PREDNISONE
     Dosage: UNK
  11. METHOTREXATE [Concomitant]
     Active Substance: METHOTREXATE
     Dosage: UNK
     Dates: start: 20150908
  12. VENOFER [Suspect]
     Active Substance: IRON SUCROSE
     Indication: ABSCESS
     Dosage: UNK, CYCLIC (EVERY 2 WEEKS)
     Route: 042
     Dates: start: 201409
  13. SALOFALK /00000301/ [Concomitant]
     Active Substance: MESALAMINE
     Dosage: UNK
     Dates: start: 201501, end: 201503
  14. VITAMIN D [Concomitant]
     Active Substance: CHOLECALCIFEROL
     Dosage: UNK
  15. FRAGMIN [Suspect]
     Active Substance: DALTEPARIN SODIUM
     Indication: DEEP VEIN THROMBOSIS
     Dosage: 15000 IU, DAILY
     Route: 058
  16. KETOLEX [Suspect]
     Active Substance: KETOROLAC TROMETHAMINE
     Indication: ABSCESS
     Dosage: 500 MG, 4X/DAY
     Route: 048
     Dates: start: 20150918, end: 20151002
  17. PANTOLOC [Suspect]
     Active Substance: PANTOPRAZOLE SODIUM
     Dosage: 40 MG, DAILY
  18. FRAGMIN [Suspect]
     Active Substance: DALTEPARIN SODIUM
     Indication: PHLEBITIS
  19. PLAQUENIL [Concomitant]
     Active Substance: HYDROXYCHLOROQUINE SULFATE
     Dosage: UNK
  20. APO-CEPHALEX [Concomitant]
     Active Substance: CEPHALEXIN
     Indication: ABSCESS
     Dosage: UNK
     Route: 048
  21. STEMETIL /00013301/ [Concomitant]
     Active Substance: PROCHLORPERAZINE
     Dosage: UNK
  22. ACTONEL [Concomitant]
     Active Substance: RISEDRONATE SODIUM
     Dosage: UNK

REACTIONS (12)
  - Diarrhoea haemorrhagic [Recovered/Resolved]
  - Infusion site oedema [Unknown]
  - Haematoma [Unknown]
  - Colitis ulcerative [Recovered/Resolved]
  - Erythema nodosum [Unknown]
  - Abscess limb [Not Recovered/Not Resolved]
  - Infusion site pain [Unknown]
  - Tooth abscess [Recovered/Resolved]
  - Infusion site warmth [Unknown]
  - Infusion site erythema [Unknown]
  - Abscess limb [Unknown]
  - Abscess [Unknown]

NARRATIVE: CASE EVENT DATE: 20150904
